FAERS Safety Report 6359328-0 (Version None)
Quarter: 2009Q3

REPORT INFORMATION
  Report Type: 
  Country: None (occurrence: None)
  Receive Date: 20090914
  Receipt Date: 20090819
  Transmission Date: 20100115
  Serious: Yes (Hospitalization, Other)
  Sender: FDA-Public Use
  Company Number: AUR-APL-2009-00455

PATIENT
  Age: 13 Year
  Sex: Male
  Weight: 61 kg

DRUGS (10)
  1. ONDANSETRON [Suspect]
     Dosage: 2X5MG/M2, DAILY, ORAL
     Route: 048
     Dates: start: 20080714, end: 20080729
  2. OMEPRAZOLE [Suspect]
     Dosage: 20MG, DAILY, ORAL
     Route: 048
     Dates: start: 20080307
  3. THIOGUANINE [Suspect]
     Dosage: 60MG/M2-DAILY-ORAL
     Route: 048
     Dates: start: 20080714, end: 20080728
  4. CYCLOPHOSPHAMIDE [Suspect]
     Dosage: 1000MG/M2-IV
     Route: 042
     Dates: start: 20080714
  5. MESNA [Suspect]
     Dosage: 1000MG/M2-IV
     Route: 042
     Dates: start: 20080714
  6. CYTARABINE [Suspect]
     Dosage: 75MG/M2-DAILY-IV
     Route: 042
     Dates: start: 20080716, end: 20080719
  7. CYTARABINE [Suspect]
     Dosage: 75MG/M2-DAILY-IV
     Route: 042
     Dates: start: 20080723, end: 20080726
  8. METHOTREXATE [Suspect]
     Dosage: INTRATHECAL
     Route: 037
     Dates: start: 20080716
  9. SULFAMETHOXAZOLE AND TRIMETHOPRIM [Suspect]
     Dosage: 2 X 400MG-DAILY-ORAL
     Route: 048
     Dates: start: 20080603
  10. METHYLPREDNISOLONE 4MG TAB [Suspect]

REACTIONS (12)
  - DYSARTHRIA [None]
  - FACIAL PARESIS [None]
  - HAEMOGLOBIN DECREASED [None]
  - HAEMORRHAGE [None]
  - HEMIPARESIS [None]
  - MIGRAINE [None]
  - NERVOUS SYSTEM DISORDER [None]
  - PLATELET COUNT DECREASED [None]
  - SENSORY LOSS [None]
  - SWELLING FACE [None]
  - TRANSIENT ISCHAEMIC ATTACK [None]
  - VASCULITIS [None]
